FAERS Safety Report 8242071 (Version 2)
Quarter: 2013Q1

REPORT INFORMATION
  Report Type: Spontaneous
  Country: US (occurrence: US)
  Receive Date: 20111112
  Receipt Date: 20130102
  Transmission Date: 20140127
  Serious: Yes (Hospitalization, Other)
  Sender: FDA-Public Use
  Company Number: US-ASTRAZENECA-2011SE67324

PATIENT
  Age: 55 Year
  Sex: Male

DRUGS (2)
  1. NEXIUM [Suspect]
     Route: 048
  2. NEXIUM [Suspect]
     Dosage: DOUBLE THE PREVIOUS DOSE
     Route: 048

REACTIONS (4)
  - Pancreatic carcinoma [Unknown]
  - Intestinal perforation [Unknown]
  - Hepatic neoplasm [Unknown]
  - Pancreatic neuroendocrine tumour [Unknown]
